FAERS Safety Report 6993051-4 (Version None)
Quarter: 2010Q3

REPORT INFORMATION
  Report Type: 
  Country: None (occurrence: None)
  Receive Date: 20100917
  Receipt Date: 20100104
  Transmission Date: 20110219
  Serious: No
  Sender: FDA-Public Use
  Company Number: US-ASTRAZENECA-2010SE00094

PATIENT
  Age: 400 Month
  Sex: Male
  Weight: 108.9 kg

DRUGS (4)
  1. SEROQUEL [Suspect]
     Indication: BIPOLAR DISORDER
     Dosage: 300-400 MG DAILY
     Route: 048
     Dates: start: 19970101, end: 20070401
  2. ABILIFY [Concomitant]
     Dates: start: 20040101
  3. THORAZINE [Concomitant]
     Dates: start: 19960101
  4. DEPAKOTE [Concomitant]
     Dates: start: 19970101, end: 20020101

REACTIONS (4)
  - BLOOD CHOLESTEROL INCREASED [None]
  - HYPERLIPIDAEMIA [None]
  - OBESITY [None]
  - TYPE 2 DIABETES MELLITUS [None]
